FAERS Safety Report 10207779 (Version 1)
Quarter: 2014Q2

REPORT INFORMATION
  Report Type: Report from Study
  Country: SD (occurrence: SD)
  Receive Date: 20140530
  Receipt Date: 20140530
  Transmission Date: 20141212
  Serious: Yes (Hospitalization)
  Sender: FDA-Public Use
  Company Number: SD-SA-2014SA069466

PATIENT
  Age: 59 Year
  Sex: Male

DRUGS (2)
  1. LANTUS [Suspect]
     Indication: DIABETES MELLITUS
     Route: 065
  2. METFORMIN [Concomitant]

REACTIONS (2)
  - Chest pain [Recovered/Resolved]
  - Hyperglycaemia [Recovered/Resolved]
